FAERS Safety Report 5289691-3 (Version None)
Quarter: 2007Q1

REPORT INFORMATION
  Report Type: 
  Country: None (occurrence: None)
  Receive Date: 20070330
  Receipt Date: 20070321
  Transmission Date: 20070707
  Serious: Yes (Life-Threatening, Hospitalization)
  Sender: FDA-Public Use
  Company Number: 154307ISR

PATIENT
  Age: 84 Year
  Sex: Male

DRUGS (1)
  1. MIRTAZAPINE [Suspect]
     Indication: PRURITUS
     Dosage: 15 GRAM ORAL
     Route: 048
     Dates: start: 20070115, end: 20070220

REACTIONS (2)
  - LETHARGY [None]
  - RENAL FAILURE [None]
